FAERS Safety Report 5129263-4 (Version None)
Quarter: 2006Q4

REPORT INFORMATION
  Report Type: 
  Country: None (occurrence: None)
  Receive Date: 20061012
  Receipt Date: 20061002
  Transmission Date: 20070319
  Serious: Yes (Death)
  Sender: FDA-Public Use
  Company Number: 2006000615

PATIENT
  Age: 57 Year

DRUGS (2)
  1. ORAMORPH SR [Suspect]
     Dosage: ORAL
     Route: 048
  2. UNKNOWN DRUG [Suspect]
     Dosage: ORAL
     Route: 048

REACTIONS (1)
  - COMPLETED SUICIDE [None]
